FAERS Safety Report 9548437 (Version 1)
Quarter: 2013Q3

REPORT INFORMATION
  Report Type: Spontaneous
  Country: US (occurrence: None)
  Receive Date: 20130701
  Receipt Date: 20130701
  Transmission Date: 20140515
  Serious: No
  Sender: FDA-Public Use
  Company Number: 1374181

PATIENT
  Age: 67 Year
  Sex: Male

DRUGS (1)
  1. QUELICIN [Suspect]
     Indication: SEDATION
     Dosage: UNKNOWN, UNKNOWN, UNKNOWN, INTRAVENOUS
     Route: 042
     Dates: start: 20120711

REACTIONS (2)
  - Drug effect delayed [None]
  - Product quality issue [None]
